FAERS Safety Report 8437989-X (Version None)
Quarter: 2012Q2

REPORT INFORMATION
  Report Type: 
  Country: None (occurrence: None)
  Receive Date: 20120614
  Receipt Date: 20120529
  Transmission Date: 20120825
  Serious: No
  Sender: FDA-Public Use
  Company Number: US-AMGEN-USASP2012026777

PATIENT
  Age: 71 Year
  Sex: Female
  Weight: 41.27 kg

DRUGS (8)
  1. CALCIUM [Concomitant]
     Indication: OSTEOPOROSIS
     Dosage: UNK
  2. PLAQUENIL [Concomitant]
     Indication: RHEUMATOID ARTHRITIS
     Dosage: 200 MG, 3 TIMES/WK
     Dates: start: 20070101
  3. PREDNISONE TAB [Concomitant]
     Indication: RHEUMATOID ARTHRITIS
     Dosage: UNK
  4. LISINOPRIL [Concomitant]
     Dosage: 20 MG, QD
  5. PROLIA [Suspect]
     Indication: OSTEOPOROSIS POSTMENOPAUSAL
     Dosage: 60 MG, Q6MO
     Route: 058
     Dates: start: 20120301, end: 20120301
  6. VITAMIN D [Concomitant]
     Indication: OSTEOPOROSIS
     Dosage: UNK
  7. SIMVASTATIN [Concomitant]
     Dosage: 20 MG, QD
  8. DILTIAZEM [Concomitant]
     Dosage: 120 MG, QD

REACTIONS (5)
  - ARTHRALGIA [None]
  - ERYTHEMA [None]
  - OEDEMA PERIPHERAL [None]
  - JOINT SWELLING [None]
  - PAIN IN EXTREMITY [None]
